FAERS Safety Report 6229856-7 (Version None)
Quarter: 2009Q2

REPORT INFORMATION
  Report Type: 
  Country: None (occurrence: None)
  Receive Date: 20090615
  Receipt Date: 20090608
  Transmission Date: 20091009
  Serious: Yes (Other)
  Sender: FDA-Public Use
  Company Number: US-GILEAD-2009-0022470

PATIENT
  Sex: Female
  Weight: 50.394 kg

DRUGS (17)
  1. LETAIRIS [Suspect]
     Indication: PULMONARY ARTERIAL HYPERTENSION
     Route: 048
     Dates: start: 20090506
  2. COUMADIN [Concomitant]
  3. LASIX [Concomitant]
  4. ALDACTONE [Concomitant]
  5. METOLAZONE [Concomitant]
  6. LANOXIN [Concomitant]
  7. LOPRESSOR [Concomitant]
  8. CARDIZEM CD [Concomitant]
  9. FOSAMAX [Concomitant]
  10. MOTRIN [Concomitant]
  11. ASPIRIN [Concomitant]
  12. PLAVIX [Concomitant]
  13. CRESTOR [Concomitant]
  14. LEVOTHROID [Concomitant]
  15. IRON [Concomitant]
  16. POTASSIUM CHLORIDE [Concomitant]
  17. OMEPRAZOLE [Concomitant]

REACTIONS (2)
  - BLOOD PRESSURE DECREASED [None]
  - LIVER DISORDER [None]
